FAERS Safety Report 5841540-8 (Version None)
Quarter: 2008Q3

REPORT INFORMATION
  Report Type: 
  Country: None (occurrence: None)
  Receive Date: 20080812
  Receipt Date: 20080808
  Transmission Date: 20090109
  Serious: Yes (Hospitalization)
  Sender: FDA-Public Use
  Company Number: GB-BRISTOL-MYERS SQUIBB COMPANY-14295257

PATIENT
  Age: 57 Year
  Sex: Female

DRUGS (4)
  1. PACLITAXEL [Suspect]
     Indication: BREAST CANCER
     Dates: start: 20070904, end: 20070904
  2. CYCLOPHOSPHAMIDE [Suspect]
     Indication: BREAST CANCER
     Dates: start: 20070710, end: 20070710
  3. EPIRUBICIN HCL [Suspect]
     Indication: BREAST CANCER
     Dates: start: 20070710, end: 20070710
  4. GEMCITABINE [Suspect]
     Indication: BREAST CANCER
     Dates: start: 20070904, end: 20070904

REACTIONS (3)
  - NEUTROPENIA [None]
  - PLEURITIC PAIN [None]
  - PYREXIA [None]
